FAERS Safety Report 5478847-2 (Version None)
Quarter: 2007Q4

REPORT INFORMATION
  Report Type: 
  Country: None (occurrence: None)
  Receive Date: 20071002
  Receipt Date: 20070917
  Transmission Date: 20080405
  Serious: Yes (Hospitalization)
  Sender: FDA-Public Use
  Company Number: 2007BM000119

PATIENT
  Age: 42 Year
  Sex: Male

DRUGS (1)
  1. PREDNISONE [Suspect]
     Indication: PEMPHIGUS
     Dosage: 75 MG;QD; 5 MG;QD
     Dates: start: 20030101

REACTIONS (3)
  - HEPATIC FAILURE [None]
  - HEPATITIS ACUTE [None]
  - HEPATITIS B [None]
